FAERS Safety Report 24067130 (Version 11)
Quarter: 2025Q3

REPORT INFORMATION
  Report Type: Spontaneous
  Country: US (occurrence: US)
  Receive Date: 20240709
  Receipt Date: 20250922
  Transmission Date: 20251021
  Serious: No
  Sender: ROCHE
  Company Number: US-ROCHE-10000015579

PATIENT
  Age: 35 Year
  Sex: Female

DRUGS (6)
  1. XOLAIR PFS [Suspect]
     Active Substance: OMALIZUMAB
     Indication: Asthma
     Dosage: STRENGTH: 300MG/2ML, ONGOING?XOLAIR SD PRE-FILLED SYRINGE
     Route: 058
     Dates: start: 202305
  2. XOLAIR PFS [Suspect]
     Active Substance: OMALIZUMAB
     Indication: Immune system disorder
     Dosage: FORM STRENGTH: 150MG/ML
     Route: 058
     Dates: start: 202305
  3. XOLAIR PFS [Suspect]
     Active Substance: OMALIZUMAB
     Indication: Asthma
  4. HAEGARDA [Concomitant]
     Active Substance: HUMAN C1-ESTERASE INHIBITOR
  5. EPINEPHRINE [Concomitant]
     Active Substance: EPINEPHRINE
  6. SODIUM CHLORIDE [Concomitant]
     Active Substance: SODIUM CHLORIDE

REACTIONS (10)
  - Pharyngeal disorder [Unknown]
  - Gastrointestinal disorder [Unknown]
  - Abdominal distension [Unknown]
  - Infection [Unknown]
  - Pharyngeal swelling [Unknown]
  - Weight increased [Unknown]
  - Swelling [Unknown]
  - Off label use [Unknown]
  - Swelling face [Unknown]
  - Poor venous access [Unknown]

NARRATIVE: CASE EVENT DATE: 20240603
